FAERS Safety Report 19040797 (Version 1)
Quarter: 2021Q1

REPORT INFORMATION
  Report Type: Report from Study
  Country: MX (occurrence: MX)
  Receive Date: 20210323
  Receipt Date: 20210323
  Transmission Date: 20210420
  Serious: Yes (Other)
  Sender: FDA-Public Use
  Company Number: MX-NOVOPROD-795284

PATIENT
  Age: 75 Year
  Sex: Male
  Weight: 93 kg

DRUGS (1)
  1. OZEMPIC [Suspect]
     Active Substance: SEMAGLUTIDE
     Indication: TYPE 2 DIABETES MELLITUS
     Dosage: 0.25 MG, QW
     Route: 058
     Dates: start: 20210205

REACTIONS (5)
  - Nausea [Recovering/Resolving]
  - Diarrhoea [Recovering/Resolving]
  - Weight loss poor [Unknown]
  - Abdominal discomfort [Recovering/Resolving]
  - Decreased appetite [Recovering/Resolving]

NARRATIVE: CASE EVENT DATE: 20210205
